FAERS Safety Report 26061062 (Version 2)
Quarter: 2025Q4

REPORT INFORMATION
  Report Type: Report from Study
  Country: PK (occurrence: PK)
  Receive Date: 20251118
  Receipt Date: 20251216
  Transmission Date: 20260118
  Serious: Yes (Other)
  Sender: PFIZER
  Company Number: PK-MLMSERVICE-20251104-PI697073-00029-4

PATIENT
  Age: 64 Year
  Sex: Male

DRUGS (21)
  1. GLIMEPIRIDE [Interacting]
     Active Substance: GLIMEPIRIDE
     Indication: Diabetes mellitus
     Dosage: UNK
     Route: 048
  2. CLINDAMYCIN HYDROCHLORIDE [Interacting]
     Active Substance: CLINDAMYCIN HYDROCHLORIDE
     Dosage: 500 MG
  3. CIPROFLOXACIN HYDROCHLORIDE [Interacting]
     Active Substance: CIPROFLOXACIN HYDROCHLORIDE
     Dosage: UNK
  4. OMEPRAZOLE [Interacting]
     Active Substance: OMEPRAZOLE
     Dosage: UNK
  5. ATENOLOL [Interacting]
     Active Substance: ATENOLOL
     Indication: Hypertension
     Dosage: UNK
  6. SINEMET [Interacting]
     Active Substance: CARBIDOPA\LEVODOPA
     Indication: Parkinson^s disease
     Dosage: UNK
  7. AMANTADINE [Interacting]
     Active Substance: AMANTADINE
     Indication: Parkinson^s disease
     Dosage: UNK
  8. ASPIRIN [Interacting]
     Active Substance: ASPIRIN
     Indication: Parkinson^s disease
     Dosage: 75 MG, 1X/DAY
  9. TRAMADOL [Interacting]
     Active Substance: TRAMADOL
     Indication: Analgesic therapy
     Dosage: UNK
     Route: 048
  10. TRAMADOL [Interacting]
     Active Substance: TRAMADOL
     Dosage: 37.5 MG,  AT HOSPITAL DISCHARGE
     Route: 048
  11. TRAMADOL [Interacting]
     Active Substance: TRAMADOL
     Dosage: 37.5 MG, 1-WEEK FOLLOW-UP
     Route: 048
  12. ACETAMINOPHEN [Interacting]
     Active Substance: ACETAMINOPHEN
     Indication: Analgesic therapy
     Dosage: UNK
     Route: 048
  13. ACETAMINOPHEN [Interacting]
     Active Substance: ACETAMINOPHEN
     Indication: Analgesic therapy
     Dosage: 325 MG, HS, AT HOSPITAL DISCHARGE
     Route: 048
  14. ACETAMINOPHEN [Interacting]
     Active Substance: ACETAMINOPHEN
     Dosage: 325 MG, AS NEEDED SELF, ANALGESICS ADJUSTED AT 1-WEEK FOLLOW-UP
     Route: 048
  15. ACETAMINOPHEN [Interacting]
     Active Substance: ACETAMINOPHEN
     Dosage: 1000 MG, 3X/DAY, ANALGESICS ADJUSTED AT 1-WEEK FOLLOW-UP
     Route: 048
  16. ACETAMINOPHEN [Interacting]
     Active Substance: ACETAMINOPHEN
     Dosage: 1000 MG, 3X/DAY,HOSPITAL DISCHARGE
     Route: 048
  17. KETOROLAC [Interacting]
     Active Substance: KETOROLAC TROMETHAMINE
     Indication: Analgesic therapy
     Dosage: UNK
     Route: 048
  18. MORPHINE [Interacting]
     Active Substance: MORPHINE
     Indication: Analgesic therapy
     Dosage: UNK
     Route: 048
  19. HUMALOG [Interacting]
     Active Substance: INSULIN LISPRO
     Indication: Diabetes mellitus
     Dosage: 2 IU
  20. ETORICOXIB [Interacting]
     Active Substance: ETORICOXIB
     Indication: Analgesic therapy
     Dosage: 90 MG, 1X/DAY, AT HOSPITAL DISCHARGE
     Route: 048
  21. ETORICOXIB [Interacting]
     Active Substance: ETORICOXIB
     Dosage: 60 MG, AS NEEDED, AT 1-WEEK FOLLOW-UP
     Route: 048

REACTIONS (2)
  - Drug interaction [Recovered/Resolved]
  - Hypoglycaemia [Recovered/Resolved]

NARRATIVE: CASE EVENT DATE: 20231123
